FAERS Safety Report 6656153-8 (Version None)
Quarter: 2010Q1

REPORT INFORMATION
  Report Type: 
  Country: None (occurrence: None)
  Receive Date: 20100329
  Receipt Date: 20090730
  Transmission Date: 20100710
  Serious: Yes (Hospitalization)
  Sender: FDA-Public Use
  Company Number: PHHY2009TW61091

PATIENT

DRUGS (1)
  1. GLEEVEC [Suspect]
     Dosage: 600 MG, 06 TABLETS

REACTIONS (3)
  - BONE MARROW TRANSPLANT [None]
  - NAUSEA [None]
  - VOMITING [None]
